FAERS Safety Report 9805374 (Version 2)
Quarter: 2014Q1

REPORT INFORMATION
  Report Type: Spontaneous
  Country: US (occurrence: None)
  Receive Date: 20140107
  Receipt Date: 20140114
  Transmission Date: 20141002
  Serious: Yes (Hospitalization, Other)
  Sender: FDA-Public Use
  Company Number: AUR-APL-2014-00104

PATIENT
  Age: 19 Year
  Sex: Female

DRUGS (13)
  1. CEFAZOLIN [Suspect]
     Indication: ANTIBIOTIC PROPHYLAXIS
     Route: 042
  2. CEFALEXIN [Suspect]
     Indication: PRODUCT USED FOR UNKNOWN INDICATION
     Dosage: 200 MG (500 MG,4 IN 1 D)
     Route: 048
  3. TETRACYCLINE [Suspect]
     Indication: ACNE
     Dosage: 1000 MG (500 MG,2 IN 1 D)
     Route: 048
  4. MORPHINE (MORPHINE) [Concomitant]
  5. DEXAMETHASONE (DEXAMETHASONE) [Concomitant]
  6. KETOROLAC (KETOROLAC) [Concomitant]
  7. ONDANSETRON (ONDANSETRON) [Concomitant]
  8. OXYCODONE/ACETAMINOPHEN (OXYCOCET) [Concomitant]
  9. IBUPROFEN (IBUPROFEN) [Concomitant]
  10. LAMOTRIGINE (LAMOTRIGINE) [Concomitant]
  11. VALPROIC ACID (VALPROIC ACID) [Concomitant]
  12. ARIPRAZOLE (ARIPRAZOLE) [Concomitant]
  13. METHYLPHENIDATE [Concomitant]

REACTIONS (19)
  - Gait disturbance [None]
  - Tachycardia [None]
  - Rectal prolapse [None]
  - Electrolyte imbalance [None]
  - Clostridium difficile colitis [None]
  - Sepsis [None]
  - Malaise [None]
  - Ascites [None]
  - Colitis [None]
  - Small intestinal obstruction [None]
  - Treatment failure [None]
  - Urine output decreased [None]
  - Pseudomembranous colitis [None]
  - Haematocrit decreased [None]
  - Post procedural complication [None]
  - Urinary tract infection [None]
  - Deformity [None]
  - Gingival disorder [None]
  - Mastication disorder [None]
